FAERS Safety Report 10250507 (Version 1)
Quarter: 2014Q2

REPORT INFORMATION
  Report Type: Spontaneous
  Country: TR (occurrence: TR)
  Receive Date: 20140620
  Receipt Date: 20140620
  Transmission Date: 20141212
  Serious: Yes (Other)
  Sender: FDA-Public Use
  Company Number: TR-BRISTOL-MYERS SQUIBB COMPANY-20998043

PATIENT
  Age: 50 Year
  Sex: Female
  Weight: 83 kg

DRUGS (4)
  1. ORENCIA [Suspect]
     Indication: RHEUMATOID ARTHRITIS
     Route: 042
     Dates: start: 20140407, end: 20140502
  2. METHOTREXATE [Concomitant]
     Route: 030
     Dates: start: 2009
  3. SULFASALAZINE [Concomitant]
  4. HYDROXYCHLOROQUINE [Concomitant]

REACTIONS (1)
  - Psoriasis [Not Recovered/Not Resolved]
